FAERS Safety Report 15476954 (Version 8)
Quarter: 2020Q2

REPORT INFORMATION
  Report Type: Report from Study
  Country: CA (occurrence: CA)
  Receive Date: 20181009
  Receipt Date: 20200610
  Transmission Date: 20200713
  Serious: Yes (Hospitalization, Other)
  Sender: FDA-Public Use
  Company Number: CA-ROCHE-2195138

PATIENT
  Age: 44 Year
  Sex: Male

DRUGS (4)
  1. OCREVUS [Suspect]
     Active Substance: OCRELIZUMAB
     Indication: RELAPSING-REMITTING MULTIPLE SCLEROSIS
     Dosage: 1.00 X 300 MG DAY 1 AND 15 THEN EVENRY 6M ;ONGOING: YES
     Route: 042
     Dates: start: 20180925
  2. CBD OIL [Concomitant]
     Active Substance: CANNABIDIOL\HERBALS
     Route: 048
     Dates: start: 201809
  3. GABAPENTINE [Concomitant]
     Active Substance: GABAPENTIN
  4. PANTOLOC [PANTOPRAZOLE] [Concomitant]
     Active Substance: PANTOPRAZOLE SODIUM

REACTIONS (18)
  - Sinus headache [Not Recovered/Not Resolved]
  - Nasopharyngitis [Not Recovered/Not Resolved]
  - Feeling of body temperature change [Not Recovered/Not Resolved]
  - Dyspnoea [Recovered/Resolved]
  - Nausea [Recovering/Resolving]
  - Malaise [Recovering/Resolving]
  - Hypoaesthesia [Unknown]
  - Lower respiratory tract infection [Not Recovered/Not Resolved]
  - Migraine [Recovered/Resolved]
  - Viral infection [Recovered/Resolved]
  - Rhinorrhoea [Recovering/Resolving]
  - Multiple sclerosis relapse [Unknown]
  - Dizziness [Unknown]
  - Paraesthesia [Recovered/Resolved]
  - Cough [Recovering/Resolving]
  - Tremor [Unknown]
  - Productive cough [Not Recovered/Not Resolved]
  - Infusion related reaction [Unknown]

NARRATIVE: CASE EVENT DATE: 20180926
